FAERS Safety Report 24708585 (Version 4)
Quarter: 2024Q4

REPORT INFORMATION
  Report Type: Spontaneous
  Country: CA (occurrence: CA)
  Receive Date: 20241207
  Receipt Date: 20241227
  Transmission Date: 20250114
  Serious: Yes (Other)
  Sender: CELLTRION
  Company Number: CA-PFIZER INC-202400303135

PATIENT

DRUGS (5)
  1. INFLECTRA [Suspect]
     Active Substance: INFLIXIMAB-DYYB
     Indication: Colitis ulcerative
     Dosage: 10 MG/KG WEEK 0, 2 ,6 THEN 5 MG/KG EVERY 8 WEEKS (WEEK 0 DOSE)
     Route: 042
     Dates: start: 20241017
  2. INFLECTRA [Suspect]
     Active Substance: INFLIXIMAB-DYYB
     Dosage: 10 MG/KG WEEK 0, 2 ,6 THEN 5 MG/KG EVERY 8 WEEKS (WEEK 2 DOSE)
     Route: 042
     Dates: start: 20241029
  3. INFLECTRA [Suspect]
     Active Substance: INFLIXIMAB-DYYB
     Dosage: 900 MG (10 MG/KG), AFTER 4 WEEKS AND 2 DAYS (EVERY 4 WKS) REINDUCTION: WEEK 0,2,6 THEN 10MG/KG Q4WKS
     Route: 042
     Dates: start: 20241128
  4. INFLECTRA [Suspect]
     Active Substance: INFLIXIMAB-DYYB
     Dosage: 860 MG (10 MG/KG), (WEEK 2 REINDUCTION) REINDUCTION: WEEK 0,2,6 THEN 10MG/KG Q4WEEKS
     Route: 042
     Dates: start: 20241212, end: 20241212
  5. PREDNISONE [Concomitant]
     Active Substance: PREDNISONE
     Dosage: 1 DF

REACTIONS (5)
  - Condition aggravated [Not Recovered/Not Resolved]
  - Weight decreased [Unknown]
  - Treatment failure [Unknown]
  - Off label use [Unknown]
  - Off label use [Unknown]

NARRATIVE: CASE EVENT DATE: 20240101
